FAERS Safety Report 9532382 (Version 1)
Quarter: 2013Q2

REPORT INFORMATION
  Report Type: Spontaneous
  Country: FR (occurrence: None)
  Receive Date: 20130403
  Receipt Date: 20130403
  Transmission Date: 20140414
  Serious: Yes (Hospitalization)
  Sender: FDA-Public Use
  Company Number: US-2011-10479

PATIENT
  Age: 32 Year
  Sex: Female
  Weight: 74 kg

DRUGS (6)
  1. BUSULFEX [Suspect]
     Indication: MYELOID LEUKAEMIA
     Dates: start: 20110112, end: 20110112
  2. CYCLOPHOSPHAMIDE MONOHYDRATE [Suspect]
     Indication: MYELOID LEUKAEMIA
     Route: 042
     Dates: start: 20110117, end: 20110118
  3. ORACILLINE (PHENOXYMETHYLPENICILLIN BENZATHINE) [Concomitant]
  4. NOXAFIL (POSACONAZOLE) [Concomitant]
  5. BACTRIM [Concomitant]
  6. ZELITREX (VALACICLOVIR HYDROCHLORIDE) [Concomitant]

REACTIONS (1)
  - Viral haemorrhagic cystitis [None]
